FAERS Safety Report 21606727 (Version 2)
Quarter: 2022Q4

REPORT INFORMATION
  Report Type: Report from Study
  Country: JP (occurrence: JP)
  Receive Date: 20221117
  Receipt Date: 20221118
  Transmission Date: 20230112
  Serious: Yes (Other)
  Sender: FDA-Public Use
  Company Number: JP-ABBVIE-19K-087-3175892-00

PATIENT
  Age: 71 Year
  Sex: Male
  Weight: 54 kg

DRUGS (11)
  1. CARBIDOPA\LEVODOPA [Suspect]
     Active Substance: CARBIDOPA\LEVODOPA
     Indication: Parkinson^s disease
     Dosage: MD: 5.3 ML?CD: 3.0 ML/HR ? 12 HRS?ED: 2.0 ML/UNIT ? 2
     Route: 050
     Dates: start: 20191017, end: 20191023
  2. CARBIDOPA\LEVODOPA [Suspect]
     Active Substance: CARBIDOPA\LEVODOPA
     Dosage: MD: 5.3 ML?CD: 3.0 ML/HR ? 12 HRS?ED: 2.0 ML/UNIT ? 2
     Route: 050
     Dates: start: 20191114, end: 20201110
  3. CARBIDOPA\LEVODOPA [Suspect]
     Active Substance: CARBIDOPA\LEVODOPA
     Dosage: MD: 5.3 ML?CD: 3.3 ML/HR X 16 HRS?ED: 2.0 ML/UNIT X 3
     Route: 050
     Dates: start: 20201110, end: 20210528
  4. CARBIDOPA, LEVODOPA AND ENTACAPONE [Concomitant]
     Active Substance: CARBIDOPA\ENTACAPONE\LEVODOPA
     Indication: Parkinson^s disease
     Route: 048
     Dates: start: 201105
  5. CARBIDOPA, LEVODOPA AND ENTACAPONE [Concomitant]
     Active Substance: CARBIDOPA\ENTACAPONE\LEVODOPA
     Indication: Parkinson^s disease
     Route: 048
     Dates: start: 20191024, end: 20191113
  6. ROPINIROLE HYDROCHLORIDE [Concomitant]
     Active Substance: ROPINIROLE HYDROCHLORIDE
     Indication: Parkinson^s disease
     Route: 048
  7. RASAGILINE MESYLATE [Concomitant]
     Active Substance: RASAGILINE MESYLATE
     Indication: Parkinson^s disease
     Route: 048
  8. DROXIDOPA [Concomitant]
     Active Substance: DROXIDOPA
     Indication: Parkinson^s disease
     Route: 048
  9. MIDODRINE HYDROCHLORIDE [Concomitant]
     Active Substance: MIDODRINE HYDROCHLORIDE
     Indication: Parkinson^s disease
     Route: 048
  10. CLONAZEPAM [Concomitant]
     Active Substance: CLONAZEPAM
     Indication: Parkinson^s disease
     Route: 048
  11. SENNOSIDES A AND B [Concomitant]
     Active Substance: SENNOSIDES A AND B
     Indication: Parkinson^s disease
     Route: 048

REACTIONS (24)
  - Deep brain stimulation [Unknown]
  - Mobility decreased [Recovered/Resolved]
  - Muscular weakness [Unknown]
  - Musculoskeletal stiffness [Unknown]
  - Mobility decreased [Unknown]
  - Urinary incontinence [Unknown]
  - Malaise [Unknown]
  - Asthenia [Unknown]
  - Fatigue [Unknown]
  - Stoma site extravasation [Unknown]
  - Dyskinesia [Unknown]
  - Therapeutic product effect decreased [Recovered/Resolved]
  - Stoma site haemorrhage [Unknown]
  - Stoma site hypergranulation [Unknown]
  - Stoma site discharge [Unknown]
  - Stoma site pain [Unknown]
  - Stoma site oedema [Unknown]
  - Hallucination [Unknown]
  - On and off phenomenon [Unknown]
  - Stoma site inflammation [Recovering/Resolving]
  - Device dislocation [Unknown]
  - Therapeutic product effect incomplete [Unknown]
  - Nausea [Unknown]
  - Device breakage [Recovered/Resolved]

NARRATIVE: CASE EVENT DATE: 20191125
